FAERS Safety Report 4820370-X (Version None)
Quarter: 2005Q4

REPORT INFORMATION
  Report Type: 
  Country: None (occurrence: None)
  Receive Date: 20051104
  Receipt Date: 20050804
  Transmission Date: 20060501
  Serious: Yes (Hospitalization, Other)
  Sender: FDA-Public Use
  Company Number: US-BRISTOL-MYERS SQUIBB COMPANY-13064191

PATIENT
  Age: 64 Year
  Sex: Female

DRUGS (8)
  1. CETUXIMAB [Suspect]
     Indication: LUNG CANCER METASTATIC
     Dosage: 05-OCT-2005 DOSE WAS 380 MG.  DISCONTINUED 05-OCT-2005.
     Route: 042
     Dates: start: 20050804, end: 20050804
  2. CARBOPLATIN [Suspect]
     Indication: LUNG CANCER METASTATIC
     Dosage: LAST DOSE OF 380 MG ON 05-OCT-2005.  DISCONTINUED ON 05-OCT-2005.
     Route: 042
     Dates: start: 20050804, end: 20050804
  3. GEMZAR [Suspect]
     Indication: LUNG CANCER METASTATIC
     Dosage: LAST DOSE ON 05-OCT-2005 = 1500 MG.  DISCONTINUED ON 05-OCT-2005.
     Route: 042
     Dates: start: 20050804, end: 20050804
  4. DECADRON SRC [Concomitant]
     Route: 048
     Dates: start: 20050920
  5. DILAUDID [Concomitant]
     Dates: start: 20050802
  6. MUCINEX [Concomitant]
     Route: 048
     Dates: start: 20050928
  7. ULTRACET [Concomitant]
     Indication: RESTLESS LEGS SYNDROME
     Route: 048
     Dates: start: 20050701
  8. ZOLOFT [Concomitant]
     Dates: start: 20041001

REACTIONS (8)
  - ANXIETY [None]
  - ATELECTASIS [None]
  - BLOOD GLUCOSE INCREASED [None]
  - DYSPNOEA [None]
  - HYPERTENSION [None]
  - LUNG INFILTRATION [None]
  - PLEURAL EFFUSION [None]
  - RESTLESS LEGS SYNDROME [None]
